FAERS Safety Report 23180999 (Version 1)
Quarter: 2023Q4

REPORT INFORMATION
  Report Type: Spontaneous
  Country: AU (occurrence: AU)
  Receive Date: 20231114
  Receipt Date: 20231114
  Transmission Date: 20240110
  Serious: Yes (Hospitalization)
  Sender: FDA-Public Use
  Company Number: AU-BEH-2023165145

PATIENT
  Age: 76 Year
  Sex: Female
  Weight: 56.1 kg

DRUGS (2)
  1. HUMAN IMMUNOGLOBULIN G [Suspect]
     Active Substance: HUMAN IMMUNOGLOBULIN G
     Indication: Plasma cell myeloma
     Dosage: 25 GRAM, QMT
     Route: 042
     Dates: start: 20231101, end: 20231101
  2. HUMAN IMMUNOGLOBULIN G [Suspect]
     Active Substance: HUMAN IMMUNOGLOBULIN G
     Indication: Metastatic squamous cell carcinoma

REACTIONS (3)
  - Hypotension [Unknown]
  - Hypertrophic cardiomyopathy [Unknown]
  - Nausea [Unknown]

NARRATIVE: CASE EVENT DATE: 20231101
